FAERS Safety Report 11408674 (Version 2)
Quarter: 2015Q4

REPORT INFORMATION
  Report Type: Report from Study
  Country: US (occurrence: US)
  Receive Date: 20150822
  Receipt Date: 20151020
  Transmission Date: 20160304
  Serious: No
  Sender: FDA-Public Use
  Company Number: PHEH2015US014676

PATIENT
  Sex: Female
  Weight: 85.94 kg

DRUGS (1)
  1. GILENYA [Suspect]
     Active Substance: FINGOLIMOD HYDROCHLORIDE
     Indication: MULTIPLE SCLEROSIS
     Dosage: 0.5 MG, QD
     Route: 048
     Dates: start: 20150301

REACTIONS (4)
  - Hot flush [Recovering/Resolving]
  - Blood glucose increased [Not Recovered/Not Resolved]
  - Menopause [Unknown]
  - Blood glucose fluctuation [Not Recovered/Not Resolved]
